FAERS Safety Report 10952738 (Version 1)
Quarter: 2015Q1

REPORT INFORMATION
  Report Type: Spontaneous
  Country: US (occurrence: US)
  Receive Date: 20150325
  Receipt Date: 20150325
  Transmission Date: 20150721
  Serious: Yes (Other)
  Sender: FDA-Public Use
  Company Number: US-ASTRAZENECA-2015SE25763

PATIENT
  Age: 76 Year
  Sex: Female

DRUGS (14)
  1. TAMOXIFEN [Suspect]
     Active Substance: TAMOXIFEN
     Indication: LYMPHOMA
     Route: 048
     Dates: start: 2000, end: 2005
  2. TAMOXIFEN [Suspect]
     Active Substance: TAMOXIFEN
     Indication: BREAST CANCER
     Route: 048
     Dates: start: 2014
  3. TAMOXIFEN [Suspect]
     Active Substance: TAMOXIFEN
     Indication: LYMPHOMA
     Route: 048
     Dates: start: 2014
  4. MULTI VITAMIN [Concomitant]
     Active Substance: VITAMINS
     Dosage: EVERY DAY
     Route: 048
  5. TAMOXIFEN [Suspect]
     Active Substance: TAMOXIFEN
     Indication: BREAST CANCER
     Route: 048
     Dates: start: 2000, end: 2005
  6. MAGNESIUM OXIDE. [Concomitant]
     Active Substance: MAGNESIUM OXIDE
     Indication: DRUG THERAPY
     Route: 048
  7. PLAVIK [Concomitant]
  8. PLAVIX [Concomitant]
     Active Substance: CLOPIDOGREL BISULFATE
     Dates: end: 2015
  9. CALCIUM AND D3 [Concomitant]
     Indication: DRUG THERAPY
     Dosage: TWO TIMES A DAY
     Route: 048
  10. BRILINTA [Suspect]
     Active Substance: TICAGRELOR
     Indication: STENT PLACEMENT
     Route: 048
     Dates: start: 20150313
  11. MAGNESIUM OXIDE. [Concomitant]
     Active Substance: MAGNESIUM OXIDE
     Indication: CARDIAC OPERATION
     Route: 048
  12. DEXILANT [Concomitant]
     Active Substance: DEXLANSOPRAZOLE
  13. METOPROLOL TARTATE [Concomitant]
     Active Substance: METOPROLOL TARTRATE
     Indication: ARRHYTHMIA
     Route: 048
     Dates: start: 2003
  14. LUMIGEN [Concomitant]
     Indication: CATARACT

REACTIONS (5)
  - Diarrhoea [Unknown]
  - Ovarian cancer [Unknown]
  - Lymphadenopathy [Unknown]
  - Dyspnoea [Recovering/Resolving]
  - Chest pain [Recovering/Resolving]

NARRATIVE: CASE EVENT DATE: 2008
